FAERS Safety Report 7313001-0 (Version None)
Quarter: 2011Q1

REPORT INFORMATION
  Report Type: 
  Country: None (occurrence: None)
  Receive Date: 20110225
  Receipt Date: 20110215
  Transmission Date: 20110831
  Serious: Yes (Hospitalization)
  Sender: FDA-Public Use
  Company Number: US-AMGEN-USASP2011009166

PATIENT
  Age: 57 Year
  Sex: Male

DRUGS (2)
  1. ENBREL [Suspect]
     Indication: PSORIASIS
  2. ENBREL [Suspect]
     Indication: PSORIATIC ARTHROPATHY
     Dosage: 25 MG, 2 TIMES/WK
     Dates: start: 19960401, end: 20110101

REACTIONS (6)
  - THERAPEUTIC RESPONSE DECREASED [None]
  - PSORIASIS [None]
  - PSORIATIC ARTHROPATHY [None]
  - GAIT DISTURBANCE [None]
  - DRUG DOSE OMISSION [None]
  - OEDEMA PERIPHERAL [None]
